FAERS Safety Report 24961463 (Version 1)
Quarter: 2025Q1

REPORT INFORMATION
  Report Type: Spontaneous
  Country: US (occurrence: US)
  Receive Date: 20250212
  Receipt Date: 20250212
  Transmission Date: 20250409
  Serious: Yes (Other)
  Sender: ABBVIE
  Company Number: US-ABBVIE-6131037

PATIENT
  Sex: Male

DRUGS (1)
  1. TRILIPIX [Suspect]
     Active Substance: FENOFIBRIC ACID
     Indication: Blood triglycerides increased
     Route: 065

REACTIONS (1)
  - Myocardial infarction [Unknown]
